FAERS Safety Report 6229083-3 (Version None)
Quarter: 2009Q2

REPORT INFORMATION
  Report Type: 
  Country: None (occurrence: None)
  Receive Date: 20090615
  Receipt Date: 20090605
  Transmission Date: 20091009
  Serious: Yes (Disabling)
  Sender: FDA-Public Use
  Company Number: IT-BIOGENIDEC-2009BI017158

PATIENT
  Age: 32 Year
  Sex: Female
  Weight: 65 kg

DRUGS (3)
  1. TYSABRI [Suspect]
     Indication: MULTIPLE SCLEROSIS
     Route: 042
     Dates: start: 20081204, end: 20090423
  2. ANTIDEPRESSANT [Concomitant]
     Indication: ANTIDEPRESSANT THERAPY
  3. GLAUCOMA MEDICATION [Concomitant]
     Indication: GLAUCOMA

REACTIONS (1)
  - CYSTITIS HAEMORRHAGIC [None]
